FAERS Safety Report 17694117 (Version 2)
Quarter: 2021Q2

REPORT INFORMATION
  Report Type: Spontaneous
  Country: US (occurrence: US)
  Receive Date: 20200422
  Receipt Date: 20210415
  Transmission Date: 20210716
  Serious: Yes (Other)
  Sender: FDA-Public Use
  Company Number: US-ASTRAZENECA-2020SE51242

PATIENT
  Age: 17328 Day
  Sex: Female

DRUGS (39)
  1. OXYCODONE [Concomitant]
     Active Substance: OXYCODONE
  2. VALSARTAN. [Concomitant]
     Active Substance: VALSARTAN
  3. METHYLPREDNISOLONE. [Concomitant]
     Active Substance: METHYLPREDNISOLONE
  4. LEVOFLOXACIN. [Concomitant]
     Active Substance: LEVOFLOXACIN
  5. GENTAMYCIN [Concomitant]
     Active Substance: GENTAMICIN
  6. AMOXICILLIN. [Concomitant]
     Active Substance: AMOXICILLIN
  7. PRILOSEC [Suspect]
     Active Substance: OMEPRAZOLE MAGNESIUM
     Route: 048
     Dates: start: 199901, end: 201606
  8. LOSARTAN. [Concomitant]
     Active Substance: LOSARTAN
  9. SENSIPAR [Concomitant]
     Active Substance: CINACALCET HYDROCHLORIDE
  10. VICODIN [Concomitant]
     Active Substance: ACETAMINOPHEN\HYDROCODONE BITARTRATE
  11. ASPIRIN. [Concomitant]
     Active Substance: ASPIRIN
  12. LEVEMIR [Concomitant]
     Active Substance: INSULIN DETEMIR
  13. HEPARIN [Concomitant]
     Active Substance: HEPARIN SODIUM
  14. ALBUTEROL. [Concomitant]
     Active Substance: ALBUTEROL
  15. PROTONIX [Suspect]
     Active Substance: PANTOPRAZOLE SODIUM
     Route: 065
     Dates: start: 199901, end: 201606
  16. NIFEDIPINE. [Concomitant]
     Active Substance: NIFEDIPINE
  17. HUMALOG [Concomitant]
     Active Substance: INSULIN LISPRO
  18. NEXIUM [Suspect]
     Active Substance: ESOMEPRAZOLE MAGNESIUM
     Route: 048
     Dates: start: 199901, end: 201606
  19. PREVACID [Suspect]
     Active Substance: LANSOPRAZOLE
     Route: 065
     Dates: start: 199901, end: 201606
  20. POTASSIUM CHLORIDE. [Concomitant]
     Active Substance: POTASSIUM CHLORIDE
  21. FOLIVANE [Concomitant]
  22. FAMOTIDINE. [Concomitant]
     Active Substance: FAMOTIDINE
  23. FERROUS SULFATE. [Concomitant]
     Active Substance: FERROUS SULFATE
  24. CLONIDINE. [Concomitant]
     Active Substance: CLONIDINE
  25. HYDRALAZINE [Concomitant]
     Active Substance: HYDRALAZINE HYDROCHLORIDE
  26. PROAIR HFA [Concomitant]
     Active Substance: ALBUTEROL SULFATE
  27. CARVEDILOL. [Concomitant]
     Active Substance: CARVEDILOL
  28. HYDROCODONE [Concomitant]
     Active Substance: HYDROCODONE
  29. AZITHROMYCIN ANHYDROUS. [Concomitant]
     Active Substance: AZITHROMYCIN ANHYDROUS
  30. METOPROLOL. [Concomitant]
     Active Substance: METOPROLOL
  31. LABETOLOL [Concomitant]
     Active Substance: LABETALOL HYDROCHLORIDE
  32. DIOVAN [Concomitant]
     Active Substance: VALSARTAN
  33. FUROSEMIDE. [Concomitant]
     Active Substance: FUROSEMIDE
  34. NIFEDIPINE. [Concomitant]
     Active Substance: NIFEDIPINE
  35. RENVELA [Concomitant]
     Active Substance: SEVELAMER CARBONATE
  36. INTEGRA [Concomitant]
     Active Substance: DIETARY SUPPLEMENT
  37. FENTANYL. [Concomitant]
     Active Substance: FENTANYL
  38. TEMAZEPAM. [Concomitant]
     Active Substance: TEMAZEPAM
  39. GUANAMYCINE [Concomitant]

REACTIONS (4)
  - Acute kidney injury [Unknown]
  - Chronic kidney disease [Unknown]
  - End stage renal disease [Unknown]
  - Renal failure [Unknown]

NARRATIVE: CASE EVENT DATE: 20120203
